FAERS Safety Report 7228713-7 (Version None)
Quarter: 2011Q1

REPORT INFORMATION
  Report Type: 
  Country: None (occurrence: None)
  Receive Date: 20110117
  Receipt Date: 20110106
  Transmission Date: 20110831
  Serious: No
  Sender: FDA-Public Use
  Company Number: US-BIOGENIDEC-2011BI001472

PATIENT
  Sex: Male

DRUGS (2)
  1. TYSABRI [Suspect]
     Indication: MULTIPLE SCLEROSIS
     Route: 042
     Dates: start: 20101109
  2. TYSABRI [Suspect]
     Route: 042
     Dates: start: 20070724, end: 20080705

REACTIONS (3)
  - MUSCLE SPASTICITY [None]
  - OEDEMA PERIPHERAL [None]
  - MEMORY IMPAIRMENT [None]
